FAERS Safety Report 6698688-8 (Version None)
Quarter: 2010Q2

REPORT INFORMATION
  Report Type: 
  Country: None (occurrence: None)
  Receive Date: 20100427
  Receipt Date: 20100216
  Transmission Date: 20101027
  Serious: No
  Sender: FDA-Public Use
  Company Number: US-ASTRAZENECA-2010SE06874

PATIENT
  Age: 22826 Day
  Sex: Female
  Weight: 63.5 kg

DRUGS (2)
  1. ZOMIG [Suspect]
     Indication: MIGRAINE
     Route: 048
     Dates: start: 20050101
  2. PRISTIQ [Concomitant]

REACTIONS (2)
  - LIMB INJURY [None]
  - POST PROCEDURAL HAEMORRHAGE [None]
